FAERS Safety Report 11281292 (Version 1)
Quarter: 2015Q3

REPORT INFORMATION
  Report Type: Spontaneous
  Country: US (occurrence: US)
  Receive Date: 20150717
  Receipt Date: 20150717
  Transmission Date: 20151125
  Serious: Yes (Other)
  Sender: FDA-Public Use
  Company Number: US-SHIRE-US201508111

PATIENT
  Age: 61 Year
  Sex: Male
  Weight: 54.42 kg

DRUGS (4)
  1. LIALDA [Suspect]
     Active Substance: MESALAMINE
     Indication: COLITIS ULCERATIVE
     Dosage: 3.6 G (THREE 1.2 G TABLETS), 1X/DAY:QD
     Route: 048
     Dates: start: 20150602, end: 20150607
  2. LIALDA [Suspect]
     Active Substance: MESALAMINE
     Dosage: 2.4 G (TWO 1.2 G TABLETS), 1X/DAY:QD
     Route: 048
     Dates: start: 20150612, end: 20150614
  3. LIALDA [Suspect]
     Active Substance: MESALAMINE
     Dosage: 3.6 G (THREE 1.2 G TABLET), 1X/DAY:QD
     Route: 048
     Dates: start: 20150709
  4. HUMIRA [Concomitant]
     Active Substance: ADALIMUMAB
     Indication: COLITIS ULCERATIVE
     Dosage: 40 MG, 1X/2WKS, THIGH OR BELLY
     Route: 058
     Dates: start: 201502

REACTIONS (3)
  - Colitis ulcerative [Not Recovered/Not Resolved]
  - Drug ineffective [Unknown]
  - Treatment noncompliance [Recovered/Resolved]

NARRATIVE: CASE EVENT DATE: 201506
